FAERS Safety Report 16789276 (Version 1)
Quarter: 2019Q3

REPORT INFORMATION
  Report Type: Spontaneous
  Country: AU (occurrence: AU)
  Receive Date: 20190910
  Receipt Date: 20190910
  Transmission Date: 20191005
  Serious: Yes (Other)
  Sender: FDA-Public Use
  Company Number: AU-EMD SERONO-9114171

PATIENT
  Age: 79 Year
  Sex: Male

DRUGS (1)
  1. BAVENCIO [Suspect]
     Active Substance: AVELUMAB
     Indication: NEUROENDOCRINE CARCINOMA OF THE SKIN
     Dates: start: 20181114

REACTIONS (2)
  - Basal cell carcinoma [Unknown]
  - Mantle cell lymphoma [Unknown]

NARRATIVE: CASE EVENT DATE: 201901
